FAERS Safety Report 6072121-1 (Version None)
Quarter: 2009Q1

REPORT INFORMATION
  Report Type: 
  Country: None (occurrence: None)
  Receive Date: 20090210
  Receipt Date: 20090204
  Transmission Date: 20090719
  Serious: Yes (Hospitalization, Other)
  Sender: FDA-Public Use
  Company Number: JP-ELI_LILLY_AND_COMPANY-JP200902000883

PATIENT
  Age: 64 Year
  Sex: Female
  Weight: 61 kg

DRUGS (5)
  1. GEMZAR [Suspect]
     Indication: LARGE CELL LUNG CANCER STAGE IV
     Route: 042
     Dates: end: 20070401
  2. CARBOPLATIN [Concomitant]
     Indication: LARGE CELL LUNG CANCER STAGE IV
     Route: 042
     Dates: start: 20050901
  3. PACLITAXEL [Concomitant]
     Indication: LARGE CELL LUNG CANCER STAGE IV
     Route: 042
     Dates: start: 20050901
  4. CORTICOSTEROID NOS [Concomitant]
     Indication: PROPHYLAXIS OF NAUSEA AND VOMITING
  5. NEUPOGEN [Concomitant]

REACTIONS (4)
  - BUNDLE BRANCH BLOCK RIGHT [None]
  - DEEP VEIN THROMBOSIS [None]
  - ELECTROCARDIOGRAM POOR R-WAVE PROGRESSION [None]
  - PULMONARY EMBOLISM [None]
